FAERS Safety Report 5325478-0 (Version None)
Quarter: 2007Q2

REPORT INFORMATION
  Report Type: 
  Country: None (occurrence: None)
  Receive Date: 20070515
  Receipt Date: 20070508
  Transmission Date: 20071010
  Serious: Yes (Other)
  Sender: FDA-Public Use
  Company Number: PT-SHR-PT-2007-017043

PATIENT
  Age: 43 Year
  Sex: Female

DRUGS (1)
  1. MIRENA [Suspect]
     Dosage: UNK, UNK
     Route: 015

REACTIONS (2)
  - ELECTIVE SURGERY [None]
  - UNEVALUABLE EVENT [None]
